FAERS Safety Report 7425348-8 (Version None)
Quarter: 2011Q2

REPORT INFORMATION
  Report Type: 
  Country: None (occurrence: None)
  Receive Date: 20110420
  Receipt Date: 20110408
  Transmission Date: 20111010
  Serious: Yes (Hospitalization, Other)
  Sender: FDA-Public Use
  Company Number: PHHY2010DE66814

PATIENT
  Sex: Male
  Weight: 75 kg

DRUGS (2)
  1. RAMIPRIL [Concomitant]
     Dates: start: 20020101
  2. AMN107 [Suspect]
     Indication: CHRONIC MYELOID LEUKAEMIA
     Dosage: 800 MG, DAILY
     Route: 048
     Dates: start: 20100723

REACTIONS (12)
  - ACUTE MYOCARDIAL INFARCTION [None]
  - DYSPNOEA [None]
  - RENAL IMPAIRMENT [None]
  - SOMNOLENCE [None]
  - CARDIAC FAILURE [None]
  - PLEURAL EFFUSION [None]
  - HYPERKALAEMIA [None]
  - RENAL FAILURE ACUTE [None]
  - BRONCHITIS [None]
  - PNEUMONIA [None]
  - ASCITES [None]
  - COUGH [None]
